FAERS Safety Report 15307792 (Version 1)
Quarter: 2018Q3

REPORT INFORMATION
  Report Type: Spontaneous
  Country: IT (occurrence: IT)
  Receive Date: 20180822
  Receipt Date: 20180822
  Transmission Date: 20181010
  Serious: Yes (Other)
  Sender: FDA-Public Use
  Company Number: IT-TEVA-2017-IT-829387

PATIENT
  Age: 70 Year
  Sex: Female

DRUGS (5)
  1. DEXAMETHASONE. [Suspect]
     Active Substance: DEXAMETHASONE
     Dosage: (MAINTENANCE THERAPY: 5 CYCLES)
     Route: 065
     Dates: start: 201109, end: 201301
  2. DEXAMETHASONE. [Suspect]
     Active Substance: DEXAMETHASONE
     Indication: PLASMA CELL MYELOMA
     Dosage: (INDUCTION: 3RD LINE THERAPY: 6 CYCLES OF INDUCTION)
     Route: 065
  3. BENDAMUSTINE HYDROCHLORIDE. [Suspect]
     Active Substance: BENDAMUSTINE HYDROCHLORIDE
     Indication: PLASMA CELL MYELOMA
     Dosage: (INDUCTION: 3RD LINE THERAPY: 6 CYCLES OF INDUCTION)
     Route: 042
  4. BENDAMUSTINE HYDROCHLORIDE. [Suspect]
     Active Substance: BENDAMUSTINE HYDROCHLORIDE
     Dosage: (MAINTENANCE THERAPY: 5 CYCLES)
     Route: 042
     Dates: start: 201109, end: 201301
  5. BORTEZOMIB. [Suspect]
     Active Substance: BORTEZOMIB
     Indication: PLASMA CELL MYELOMA
     Dosage: (INDUCTION: 3RD LINE THERAPY: 2 CYCLES OF INDUCTION)
     Route: 065

REACTIONS (2)
  - Plasma cell myeloma [Unknown]
  - Neuropathy peripheral [Unknown]
